FAERS Safety Report 17630241 (Version 1)
Quarter: 2020Q2

REPORT INFORMATION
  Report Type: Spontaneous
  Country: US (occurrence: US)
  Receive Date: 20200406
  Receipt Date: 20200406
  Transmission Date: 20200713
  Serious: Yes (Hospitalization)
  Sender: FDA-Public Use
  Company Number: US-OXFORD PHARMACEUTICALS, LLC-2020OXF00052

PATIENT
  Age: 15 Year
  Sex: Male

DRUGS (1)
  1. RISPERIDONE. [Suspect]
     Active Substance: RISPERIDONE
     Dosage: UNKNOWN INITIAL DOSE; INCREASED 2 WEEKS PRIOR TO PRESENTATION
     Route: 065

REACTIONS (5)
  - Encephalopathy [Unknown]
  - Cardiac arrest [Recovered/Resolved]
  - Multiple organ dysfunction syndrome [Unknown]
  - Hypothermia [Recovered/Resolved]
  - Respiratory failure [Recovered/Resolved]
